FAERS Safety Report 8894624 (Version 1)
Quarter: 2012Q4

REPORT INFORMATION
  Report Type: 
  Country: US (occurrence: US)
  Receive Date: 20121107
  Receipt Date: 20121107
  Transmission Date: 20130627
  Serious: No
  Sender: FDA-Public Use
  Company Number: US-AMGEN-USASP2011059157

PATIENT
  Age: 57 Year
  Sex: Male
  Weight: 83.9 kg

DRUGS (7)
  1. ENBREL [Suspect]
     Indication: PRODUCT USED FOR UNKNOWN INDICATION
     Dosage: 50 mg, qwk
     Route: 058
  2. ANDROGEL [Concomitant]
     Dosage: 1.62 %, UNK
  3. PREDNISONE [Concomitant]
     Dosage: 1 mg, UNK
  4. LYRICA [Concomitant]
     Dosage: 100 mg, UNK
  5. LOTREL [Concomitant]
  6. TRAMADOL HCL [Concomitant]
     Dosage: 50 mg, UNK
  7. AMIODARONE [Concomitant]
     Dosage: 200 mg, UNK

REACTIONS (1)
  - Lymphadenopathy [Recovering/Resolving]
